FAERS Safety Report 18426442 (Version 1)
Quarter: 2020Q4

REPORT INFORMATION
  Report Type: Spontaneous
  Country: US (occurrence: US)
  Receive Date: 20201026
  Receipt Date: 20201026
  Transmission Date: 20210114
  Serious: No
  Sender: FDA-Public Use
  Company Number: None

PATIENT
  Age: 59 Year
  Sex: Male

DRUGS (14)
  1. CLONAZEPAM. [Concomitant]
     Active Substance: CLONAZEPAM
     Dates: start: 20200117
  2. APSIRIN 81MG [Concomitant]
     Dates: start: 20200117
  3. CARVEDILOL. [Concomitant]
     Active Substance: CARVEDILOL
     Dates: start: 20200117
  4. PANTOPRAZOLE [Concomitant]
     Active Substance: PANTOPRAZOLE
     Dates: start: 20200117
  5. PLAVIX [Concomitant]
     Active Substance: CLOPIDOGREL BISULFATE
     Dates: start: 20200117
  6. PROMETHAZINE [Concomitant]
     Active Substance: PROMETHAZINE HYDROCHLORIDE
     Dates: start: 20200117
  7. ZOFRAN [Concomitant]
     Active Substance: ONDANSETRON HYDROCHLORIDE
     Dates: start: 20200117
  8. PRALUENT [Suspect]
     Active Substance: ALIROCUMAB
     Indication: HYPERLIPIDAEMIA
     Dosage: ?          OTHER FREQUENCY:BI-WEEKLY;?
     Route: 058
     Dates: start: 20200116
  9. SPIRONOLACTONE. [Concomitant]
     Active Substance: SPIRONOLACTONE
     Dates: start: 20200117
  10. AMLODIPINE [Concomitant]
     Active Substance: AMLODIPINE BESYLATE
     Dates: start: 20200117
  11. CLONIDINE. [Concomitant]
     Active Substance: CLONIDINE
     Dates: start: 20200117
  12. TRAZODONE [Concomitant]
     Active Substance: TRAZODONE HYDROCHLORIDE
     Dates: start: 20200117
  13. GABAPENTIN. [Concomitant]
     Active Substance: GABAPENTIN
     Dates: start: 20200117
  14. LISINOPRIL. [Concomitant]
     Active Substance: LISINOPRIL
     Dates: start: 20200117

REACTIONS (3)
  - Therapy interrupted [None]
  - Pruritus [None]
  - Discomfort [None]
